FAERS Safety Report 25395831 (Version 1)
Quarter: 2025Q2

REPORT INFORMATION
  Report Type: Spontaneous
  Country: US (occurrence: None)
  Receive Date: 20250603
  Receipt Date: 20250603
  Transmission Date: 20250716
  Serious: Yes (Other)
  Sender: FDA-CTU
  Company Number: None

PATIENT
  Age: 35 Year
  Sex: Male
  Weight: 185.1 kg

DRUGS (2)
  1. MOLNUPIRAVIR [Suspect]
     Active Substance: MOLNUPIRAVIR
     Indication: COVID-19
     Dosage: FREQUENCY : TWICE A DAY;?
     Route: 048
     Dates: start: 20250528, end: 20250601
  2. MOLNUPIRAVIR [Concomitant]
     Active Substance: MOLNUPIRAVIR
     Dates: start: 20250528, end: 20250601

REACTIONS (2)
  - Blood creatine phosphokinase increased [None]
  - Rhabdomyolysis [None]

NARRATIVE: CASE EVENT DATE: 20250601
